FAERS Safety Report 6183881-3 (Version None)
Quarter: 2009Q2

REPORT INFORMATION
  Report Type: 
  Country: None (occurrence: None)
  Receive Date: 20090508
  Receipt Date: 20090428
  Transmission Date: 20091009
  Serious: Yes (Other)
  Sender: FDA-Public Use
  Company Number: US-AMGEN-QUU344774

PATIENT
  Sex: Female

DRUGS (2)
  1. ENBREL [Suspect]
     Indication: RHEUMATOID ARTHRITIS
     Route: 058
     Dates: start: 20090415
  2. METHOTREXATE [Concomitant]
     Route: 030

REACTIONS (9)
  - ASTHENIA [None]
  - COLD SWEAT [None]
  - COUGH [None]
  - DYSPNOEA [None]
  - PALLOR [None]
  - PALPITATIONS [None]
  - PRESYNCOPE [None]
  - RESPIRATORY TRACT CONGESTION [None]
  - WHEEZING [None]
